FAERS Safety Report 15729456 (Version 3)
Quarter: 2019Q1

REPORT INFORMATION
  Report Type: Spontaneous
  Country: ES (occurrence: ES)
  Receive Date: 20181217
  Receipt Date: 20190127
  Transmission Date: 20190417
  Serious: No
  Sender: FDA-Public Use
  Company Number: ES-ALEXION-A201816185

PATIENT
  Sex: Female
  Weight: 70 kg

DRUGS (2)
  1. KANUMA [Suspect]
     Active Substance: SEBELIPASE ALFA
     Dosage: UNK
     Route: 065
  2. KANUMA [Suspect]
     Active Substance: SEBELIPASE ALFA
     Indication: LYSOSOMAL ACID LIPASE DEFICIENCY
     Dosage: 1 MG/KG, Q2W
     Route: 065
     Dates: start: 20180619

REACTIONS (3)
  - Product packaging quantity issue [Unknown]
  - Product packaging issue [Unknown]
  - Inappropriate schedule of product administration [Unknown]
